FAERS Safety Report 5866483-5 (Version None)
Quarter: 2008Q3

REPORT INFORMATION
  Report Type: 
  Country: None (occurrence: None)
  Receive Date: 20080902
  Receipt Date: 20080902
  Transmission Date: 20090109
  Serious: Yes (Life-Threatening, Hospitalization)
  Sender: FDA-Public Use
  Company Number: PHEH1996US01162

PATIENT
  Sex: Female
  Weight: 125 kg

DRUGS (1)
  1. NEORAL [Suspect]
     Route: 048
     Dates: start: 19960624

REACTIONS (3)
  - CONVULSION [None]
  - HEART RATE IRREGULAR [None]
  - POOR PERIPHERAL CIRCULATION [None]
